FAERS Safety Report 9523937 (Version 1)
Quarter: 2013Q1

REPORT INFORMATION
  Report Type: Spontaneous
  Country: US (occurrence: None)
  Receive Date: 20130305
  Receipt Date: 20130305
  Transmission Date: 20140127
  Serious: Yes (Other)
  Sender: FDA-Public Use
  Company Number: 163-21880-12070187

PATIENT
  Age: 73 Year
  Sex: Female
  Weight: 63 kg

DRUGS (5)
  1. REVLIMID [Suspect]
     Indication: PLASMA CELL MYELOMA
     Dosage: 10 MG, 14 IN 21 D, PO
     Route: 048
     Dates: start: 201205
  2. ECOTRIN (ACETYLSALICYLIC ACID) (UNKNOWN) [Concomitant]
  3. GAMMAGARD (IMMUNOGLOBULIN HUMAN NORMAL) (UNKNOWN) [Concomitant]
  4. VELCADE [Concomitant]
  5. ZOMETA (ZOLEDRONIC ACID) (UNKNOWN) [Concomitant]

REACTIONS (3)
  - White blood cell count decreased [None]
  - Constipation [None]
  - Red blood cell count decreased [None]
